FAERS Safety Report 22044257 (Version 2)
Quarter: 2023Q1

REPORT INFORMATION
  Report Type: Spontaneous
  Country: US (occurrence: US)
  Receive Date: 20230228
  Receipt Date: 20230329
  Transmission Date: 20230418
  Serious: Yes (Other)
  Sender: FDA-Public Use
  Company Number: US-BAYER-2023A024296

PATIENT
  Age: 12 Year
  Sex: Male

DRUGS (7)
  1. KOVALTRY [Suspect]
     Active Substance: ANTIHEMOPHILIC FACTOR, HUMAN RECOMBINANT
     Indication: Factor VIII deficiency
     Dosage: 1450 IU, BIW, ON MONDAY AND WEDNESDAY
     Route: 042
     Dates: start: 20230201
  2. KOVALTRY [Suspect]
     Active Substance: ANTIHEMOPHILIC FACTOR, HUMAN RECOMBINANT
     Indication: Factor VIII deficiency
     Dosage: 1450 IU, PRN, AS NEEDED FOR MINOR BREAKTHROUGH BLEEDS
     Route: 042
     Dates: start: 20230201
  3. KOVALTRY [Suspect]
     Active Substance: ANTIHEMOPHILIC FACTOR, HUMAN RECOMBINANT
     Indication: Factor VIII deficiency
     Dosage: 2400 IU, OW, ON FRIDAY
     Route: 042
     Dates: start: 20230201
  4. KOVALTRY [Suspect]
     Active Substance: ANTIHEMOPHILIC FACTOR, HUMAN RECOMBINANT
     Indication: Factor VIII deficiency
     Dosage: 2400 IU, PRN, AS NEEDED FOR MAJOR BLEEDS
     Route: 042
     Dates: start: 20230201
  5. KOVALTRY [Suspect]
     Active Substance: ANTIHEMOPHILIC FACTOR, HUMAN RECOMBINANT
     Indication: Factor VIII deficiency
     Dosage: 2400 IU, PRN, AS NEEDED FOR MAJOR BLEEDS
     Route: 042
     Dates: start: 20230201
  6. KOVALTRY [Suspect]
     Active Substance: ANTIHEMOPHILIC FACTOR, HUMAN RECOMBINANT
     Indication: Factor VIII deficiency
     Dosage: 1450 IU (1305-1595), PRN, AS NEEDED FOR MAJOR BLEEDS
     Route: 042
  7. KOVALTRY [Suspect]
     Active Substance: ANTIHEMOPHILIC FACTOR, HUMAN RECOMBINANT
     Indication: Factor VIII deficiency
     Dosage: 2400 IU (2160-2640), PRN, AS NEEDED FOR MAJOR BLEEDS
     Route: 042

REACTIONS (5)
  - Haemarthrosis [Recovered/Resolved]
  - Haemorrhage [None]
  - Haemarthrosis [Not Recovered/Not Resolved]
  - Haemorrhage [None]
  - Fall [None]

NARRATIVE: CASE EVENT DATE: 20230213
